FAERS Safety Report 6099719-9 (Version None)
Quarter: 2009Q1

REPORT INFORMATION
  Report Type: 
  Country: None (occurrence: None)
  Receive Date: 20090303
  Receipt Date: 20090219
  Transmission Date: 20090719
  Serious: Yes (Death)
  Sender: FDA-Public Use
  Company Number: US-WYE-H07734909

PATIENT
  Sex: Female

DRUGS (2)
  1. PROTONIX [Suspect]
     Route: 048
  2. TYLENOL (CAPLET) [Suspect]
     Dosage: ^LARGE AMOUNT OF TYLENOL PM^

REACTIONS (2)
  - HEPATIC FAILURE [None]
  - OVERDOSE [None]
